FAERS Safety Report 19201525 (Version 1)
Quarter: 2021Q2

REPORT INFORMATION
  Report Type: Report from Study
  Country: CN (occurrence: CN)
  Receive Date: 20210430
  Receipt Date: 20210430
  Transmission Date: 20210717
  Serious: Yes (Other)
  Sender: FDA-Public Use
  Company Number: CN-TAKEDA-2021TUS006389

PATIENT
  Age: 59 Year
  Sex: Male
  Weight: 52 kg

DRUGS (6)
  1. CALCIUM POLYSTYRENE SULFONATE [Concomitant]
     Active Substance: CALCIUM POLYSTYRENE SULFONATE
     Indication: HYPERKALAEMIA
     Dosage: 5 MILLIGRAM
     Route: 048
     Dates: start: 20210119
  2. ONDANSETRON HYDROCHLORIDE. [Concomitant]
     Active Substance: ONDANSETRON HYDROCHLORIDE
     Indication: ANTIEMETIC SUPPORTIVE CARE
     Dosage: 4 MILLIGRAM, 1/WEEK
     Route: 048
     Dates: start: 20201103
  3. CALCIUM CARBONATE WITH D3 [Concomitant]
     Active Substance: CALCIUM CARBONATE\CHOLECALCIFEROL
     Indication: OSTEOPOROSIS
     Dosage: 600 MILLIGRAM, QD
     Route: 048
     Dates: start: 202006
  4. IXAZOMIB [Suspect]
     Active Substance: IXAZOMIB
     Indication: PLASMA CELL MYELOMA
     Dosage: 4 MILLIGRAM, 1/WEEK
     Route: 048
     Dates: start: 20201104
  5. ACICLOVIR [Concomitant]
     Active Substance: ACYCLOVIR
     Indication: ANTIVIRAL PROPHYLAXIS
     Dosage: 0.2 GRAM, BID
     Route: 048
     Dates: start: 202006
  6. COMPOUND ALPHA?KETOACID [Concomitant]
     Indication: RENAL DISORDER PROPHYLAXIS
     Dosage: UNK UNK, TID
     Route: 048
     Dates: start: 202005

REACTIONS (6)
  - Monocyte count increased [Not Recovered/Not Resolved]
  - Hyperkalaemia [Recovered/Resolved]
  - Lymphocyte count decreased [Not Recovered/Not Resolved]
  - Basophil count increased [Recovered/Resolved]
  - White blood cell count increased [Recovered/Resolved]
  - Eosinophil count increased [Recovered/Resolved]

NARRATIVE: CASE EVENT DATE: 20201126
